FAERS Safety Report 18404687 (Version 2)
Quarter: 2020Q4

REPORT INFORMATION
  Report Type: Spontaneous
  Country: PL (occurrence: PL)
  Receive Date: 20201020
  Receipt Date: 20201104
  Transmission Date: 20210114
  Serious: Yes (Death, Hospitalization, Other)
  Sender: FDA-Public Use
  Company Number: PL-BAYER-2020-217473

PATIENT
  Age: 70 Year

DRUGS (3)
  1. XOFIGO [Suspect]
     Active Substance: RADIUM RA-223 DICHLORIDE
     Indication: BONE LESION
     Dosage: UNK
     Dates: start: 201909, end: 201909
  2. XOFIGO [Suspect]
     Active Substance: RADIUM RA-223 DICHLORIDE
     Indication: HORMONE-REFRACTORY PROSTATE CANCER
     Dosage: UNK
     Dates: start: 201907, end: 201907
  3. XOFIGO [Suspect]
     Active Substance: RADIUM RA-223 DICHLORIDE
     Indication: METASTASIS
     Dosage: UNK
     Dates: start: 201908, end: 201908

REACTIONS (10)
  - Haemoglobin decreased [None]
  - Atrial fibrillation [None]
  - General physical health deterioration [None]
  - Pain [None]
  - Alpha 1 foetoprotein decreased [None]
  - Death [Fatal]
  - Prostatic specific antigen increased [None]
  - White blood cell count decreased [None]
  - Platelet count decreased [None]
  - Asthenia [None]

NARRATIVE: CASE EVENT DATE: 201908
